FAERS Safety Report 8779848 (Version 2)
Quarter: 2012Q4

REPORT INFORMATION
  Report Type: 
  Country: US (occurrence: US)
  Receive Date: 20120912
  Receipt Date: 20121009
  Transmission Date: 20130627
  Serious: No
  Sender: FDA-Public Use
  Company Number: US-ROXANE LABORATORIES, INC.-2012-RO-01727RO

PATIENT
  Sex: Male

DRUGS (2)
  1. LOSARTAN POTASSIUM USP [Suspect]
     Indication: BLOOD PRESSURE
     Dosage: 200 mg
  2. NORVASC [Concomitant]
     Indication: BLOOD PRESSURE

REACTIONS (2)
  - Drug ineffective [Recovered/Resolved]
  - Product quality issue [Recovered/Resolved]
